FAERS Safety Report 12418748 (Version 16)
Quarter: 2017Q3

REPORT INFORMATION
  Report Type: Spontaneous
  Country: JP (occurrence: JP)
  Receive Date: 20160531
  Receipt Date: 20170705
  Transmission Date: 20171127
  Serious: Yes (Death, Life-Threatening, Hospitalization, Other)
  Sender: FDA-Public Use
  Company Number: JP-TAKEDA-2016MPI004778

PATIENT
  Age: 80 Year
  Sex: Male
  Weight: 45 kg

DRUGS (134)
  1. PREDNISOLONE SODIUM SUCCINATE [Concomitant]
     Active Substance: PREDNISOLONE SODIUM SUCCINATE
     Dosage: 40 MG, QD
     Route: 042
     Dates: start: 20160601, end: 20160603
  2. PREDNISOLONE SODIUM SUCCINATE [Concomitant]
     Active Substance: PREDNISOLONE SODIUM SUCCINATE
     Dosage: 30 MG, QD
     Route: 042
     Dates: start: 20160716, end: 20160718
  3. LANDIOLOL HYDROCHLORIDE [Concomitant]
     Active Substance: LANDIOLOL HYDROCHLORIDE
     Indication: SINUS TACHYCARDIA
     Dosage: 150 MG, QD
     Route: 042
     Dates: start: 20160521, end: 20160521
  4. BISOPROLOL [Concomitant]
     Active Substance: BISOPROLOL
     Indication: SINUS TACHYCARDIA
     Dosage: 4 MG, QD
     Route: 061
     Dates: start: 20160522
  5. POTASSIUM CHLORIDE. [Concomitant]
     Active Substance: POTASSIUM CHLORIDE
     Indication: HYPOKALAEMIA
     Dosage: 1.2 G, BID
     Route: 045
     Dates: start: 20160623
  6. FUROSEMIDE. [Concomitant]
     Active Substance: FUROSEMIDE
     Indication: PLEURAL EFFUSION
     Dosage: 20 MG, UNK
     Route: 042
     Dates: start: 20160630, end: 20160630
  7. RISPERIDONE. [Concomitant]
     Active Substance: RISPERIDONE
     Indication: DELIRIUM
     Dosage: 0.5 ML, UNK
     Route: 048
     Dates: start: 20160603, end: 20160603
  8. CILOSTAZOL. [Concomitant]
     Active Substance: CILOSTAZOL
     Indication: SUPRAVENTRICULAR EXTRASYSTOLES
     Dosage: 10 MG, QD
     Route: 048
     Dates: end: 20160519
  9. SODIUM RABEPRAZOLE [Concomitant]
     Active Substance: RABEPRAZOLE SODIUM
     Indication: TYPE 2 DIABETES MELLITUS
     Dosage: 10 MG, QD
     Route: 048
     Dates: end: 20160519
  10. TRAMADOL HYDROCHLORIDE. [Concomitant]
     Active Substance: TRAMADOL HYDROCHLORIDE
     Indication: SPINAL COMPRESSION FRACTURE
     Dosage: 25 MG, QID
     Route: 048
     Dates: end: 20160519
  11. MAGNESIUM OXIDE. [Concomitant]
     Active Substance: MAGNESIUM OXIDE
     Indication: CONSTIPATION
     Dosage: 660 MG, UNK
     Route: 048
     Dates: end: 20160519
  12. SULFAMETHOXAZOLE [Concomitant]
     Active Substance: SULFAMETHOXAZOLE
     Indication: OPPORTUNISTIC INFECTION
     Dosage: 1 MG, 3/WEEK
     Route: 048
     Dates: start: 20160517, end: 20160518
  13. INSULIN HUMAN [Concomitant]
     Active Substance: INSULIN HUMAN
     Dosage: 0.06 ML, BID
     Route: 042
     Dates: start: 20160616, end: 20160617
  14. OMEPRAZOLE. [Concomitant]
     Active Substance: OMEPRAZOLE
     Indication: HAEMATOCHEZIA
     Dosage: 20 MG, BID
     Route: 042
     Dates: start: 20160604, end: 20160605
  15. FLURBIPROFEN AXETIL [Concomitant]
     Active Substance: FLURBIPROFEN AXETIL
     Indication: PNEUMONIA
     Dosage: 1 G, UNK
     Route: 042
     Dates: start: 20160705, end: 20160707
  16. HALOPERIDOL. [Concomitant]
     Active Substance: HALOPERIDOL
     Dosage: 2.5 MG, UNK
     Route: 042
     Dates: start: 20160609, end: 20160609
  17. PREDNISOLONE SODIUM SUCCINATE [Concomitant]
     Active Substance: PREDNISOLONE SODIUM SUCCINATE
     Dosage: 10 MG, QD
     Route: 042
     Dates: start: 20160610, end: 20160613
  18. PREDNISOLONE SODIUM SUCCINATE [Concomitant]
     Active Substance: PREDNISOLONE SODIUM SUCCINATE
     Dosage: 20 MG, QD
     Route: 042
     Dates: start: 20160719, end: 20160727
  19. METHYLPREDNISOLONE SODIUM SUCCINATE. [Concomitant]
     Active Substance: METHYLPREDNISOLONE SODIUM SUCCINATE
     Dosage: 125 MG, BID
     Route: 042
     Dates: start: 20160520, end: 20160521
  20. ACETAMINOPHEN. [Concomitant]
     Active Substance: ACETAMINOPHEN
     Dosage: 500 MG, UNK
     Route: 042
     Dates: start: 20160707, end: 20160719
  21. MEPIVACAINE HYDROCHLORIDE. [Concomitant]
     Active Substance: MEPIVACAINE HYDROCHLORIDE
     Indication: LOCAL ANAESTHESIA
     Dosage: 50 MG, UNK
     Route: 061
     Dates: start: 20160627, end: 20160627
  22. PREDNISOLONE. [Suspect]
     Active Substance: PREDNISOLONE
     Indication: PLASMA CELL MYELOMA
     Dosage: 80 MG, QD
     Route: 048
     Dates: start: 20160518, end: 20160519
  23. DARATUMUMAB [Suspect]
     Active Substance: DARATUMUMAB
     Indication: PLASMA CELL MYELOMA
     Dosage: 720 MG, QD
     Route: 042
     Dates: start: 20160517, end: 20160519
  24. PREGABALIN. [Concomitant]
     Active Substance: PREGABALIN
     Indication: SCIATICA
     Dosage: 75 MG, BID
     Route: 048
     Dates: end: 20160519
  25. OXYCODONE HYDROCHLORIDE. [Concomitant]
     Active Substance: OXYCODONE HYDROCHLORIDE
     Dosage: 5 MG, BID
     Route: 048
     Dates: end: 20160517
  26. OXYCODONE HYDROCHLORIDE. [Concomitant]
     Active Substance: OXYCODONE HYDROCHLORIDE
     Dosage: 20 MG, BID
     Route: 042
     Dates: start: 20160522
  27. MAGNESIUM OXIDE. [Concomitant]
     Active Substance: MAGNESIUM OXIDE
     Dosage: 330 MG, TID
     Route: 048
     Dates: start: 20160626
  28. AMINO ACIDS NOS W/ELECTROLYTES NOS/GLUCOSE/VI [Concomitant]
     Dosage: 500 ML, TID
     Route: 042
     Dates: start: 20160623, end: 20160626
  29. DORIPENEM. [Concomitant]
     Active Substance: DORIPENEM
     Dosage: 1 G, TID
     Route: 042
     Dates: start: 20160705, end: 20160720
  30. OMEPRAZOLE. [Concomitant]
     Active Substance: OMEPRAZOLE
     Indication: PROPHYLAXIS
     Dosage: 20 MG, BID
     Route: 042
     Dates: start: 20160521, end: 20160525
  31. GLUCOSE [Concomitant]
     Active Substance: DEXTROSE
     Dosage: 20 ML, UNK
     Route: 042
     Dates: start: 20160628
  32. HALOPERIDOL. [Concomitant]
     Active Substance: HALOPERIDOL
     Dosage: 2.5 MG, UNK
     Route: 042
     Dates: start: 20160616
  33. PREDNISOLONE SODIUM SUCCINATE [Concomitant]
     Active Substance: PREDNISOLONE SODIUM SUCCINATE
     Dosage: 30 MG, QD
     Route: 042
     Dates: start: 20160604, end: 20160604
  34. PREDNISOLONE SODIUM SUCCINATE [Concomitant]
     Active Substance: PREDNISOLONE SODIUM SUCCINATE
     Dosage: 20 MG, QD
     Route: 042
     Dates: start: 20160628
  35. RISPERIDONE. [Concomitant]
     Active Substance: RISPERIDONE
     Dosage: 2 MG, QD
     Route: 048
     Dates: start: 20160613, end: 20160617
  36. RISPERIDONE. [Concomitant]
     Active Substance: RISPERIDONE
     Dosage: 1 MG, QD
     Route: 048
     Dates: start: 20160618, end: 20160621
  37. SODIUM LACTATE. [Concomitant]
     Active Substance: SODIUM LACTATE
     Indication: SINUS TACHYCARDIA
     Dosage: 500 MG, BID
     Route: 042
     Dates: start: 20160521, end: 20160521
  38. METHYLPREDNISOLONE SODIUM SUCCINATE. [Concomitant]
     Active Substance: METHYLPREDNISOLONE SODIUM SUCCINATE
     Indication: ACUTE RESPIRATORY FAILURE
     Dosage: 500 MG, QD
     Route: 042
     Dates: start: 20160519, end: 20160519
  39. OXYCODONE HYDROCHLORIDE. [Concomitant]
     Active Substance: OXYCODONE HYDROCHLORIDE
     Dosage: 20 MG, BID
     Route: 042
     Dates: start: 20160522
  40. MELPHALAN. [Suspect]
     Active Substance: MELPHALAN
     Indication: PLASMA CELL MYELOMA
     Dosage: 12 MG, QD
     Route: 048
     Dates: start: 20160517, end: 20160519
  41. OXYCODONE HYDROCHLORIDE. [Concomitant]
     Active Substance: OXYCODONE HYDROCHLORIDE
     Dosage: 10 MG, BID
     Route: 048
     Dates: start: 20160620, end: 20160622
  42. SENNOSIDE                          /00571901/ [Concomitant]
     Active Substance: SENNOSIDES A AND B
     Indication: CONSTIPATION
     Dosage: 24 MG, QD
     Route: 048
     Dates: start: 20160427, end: 20160519
  43. METOCLOPRAMIDE. [Concomitant]
     Active Substance: METOCLOPRAMIDE
     Indication: NAUSEA
     Dosage: 5 MG, UNK
     Route: 048
     Dates: start: 20160516, end: 20160519
  44. ACICLOVIR [Concomitant]
     Active Substance: ACYCLOVIR
     Dosage: 200 MG, QD
     Route: 048
     Dates: start: 20160618, end: 20160622
  45. TRIMETHOPRIM. [Concomitant]
     Active Substance: TRIMETHOPRIM
     Indication: OPPORTUNISTIC INFECTION
     Dosage: 80 MG, 3/WEEK
     Route: 048
     Dates: start: 20160517, end: 20160518
  46. AMINO ACIDS NOS W/ELECTROLYTES NOS/GLUCOSE/VI [Concomitant]
     Indication: DECREASED APPETITE
     Dosage: 500 ML, BID
     Route: 042
     Dates: start: 20160519, end: 20160622
  47. OMEPRAZOLE. [Concomitant]
     Active Substance: OMEPRAZOLE
     Indication: GASTRITIS
     Dosage: 10 MG, BID
     Route: 042
     Dates: start: 20160606, end: 20160614
  48. PREDNISOLONE SODIUM SUCCINATE [Concomitant]
     Active Substance: PREDNISOLONE SODIUM SUCCINATE
     Dosage: 50 MG, QD
     Route: 042
     Dates: start: 20160706, end: 20160712
  49. RISPERIDONE. [Concomitant]
     Active Substance: RISPERIDONE
     Indication: DELIRIUM
     Dosage: 1 MG, QD
     Route: 048
     Dates: start: 20160602, end: 20160612
  50. RAMELTEON [Concomitant]
     Active Substance: RAMELTEON
     Dosage: 4 MG, UNK
     Route: 045
     Dates: start: 20160630, end: 20160630
  51. METHYLPREDNISOLONE SODIUM SUCCINATE. [Concomitant]
     Active Substance: METHYLPREDNISOLONE SODIUM SUCCINATE
     Dosage: 125 MG, BID
     Route: 042
     Dates: start: 20160522, end: 20160522
  52. BISOPROLOL [Concomitant]
     Active Substance: BISOPROLOL
     Indication: SUPRAVENTRICULAR EXTRASYSTOLES
     Dosage: 4 MG, UNK
     Route: 061
     Dates: start: 20160627
  53. ESOMEPRAZOLE MAGNESIUM. [Concomitant]
     Active Substance: ESOMEPRAZOLE MAGNESIUM
     Dosage: 20 MG, QD
     Route: 048
     Dates: start: 20160623
  54. DIAZEPAM. [Concomitant]
     Active Substance: DIAZEPAM
     Dosage: 5 MG, UNK
     Route: 042
     Dates: start: 20160701, end: 20160701
  55. VELCADE [Suspect]
     Active Substance: BORTEZOMIB
     Indication: PLASMA CELL MYELOMA
     Dosage: 1.8 MG, QD
     Route: 058
     Dates: start: 20160517, end: 20160517
  56. GLIMEPIRIDE. [Concomitant]
     Active Substance: GLIMEPIRIDE
     Dosage: 1 MG, QD
     Route: 048
     Dates: start: 20160623
  57. OXYCODONE HYDROCHLORIDE. [Concomitant]
     Active Substance: OXYCODONE HYDROCHLORIDE
     Indication: SPINAL COMPRESSION FRACTURE
     Dosage: 0.5 MG, UNK
     Route: 048
     Dates: start: 20160427, end: 20160519
  58. OXYCODONE HYDROCHLORIDE. [Concomitant]
     Active Substance: OXYCODONE HYDROCHLORIDE
     Dosage: 10 MG, BID
     Route: 048
     Dates: start: 20160518, end: 20160519
  59. MAGNESIUM OXIDE. [Concomitant]
     Active Substance: MAGNESIUM OXIDE
     Dosage: 330 MG, TID
     Route: 048
     Dates: start: 20160621, end: 20160622
  60. ACICLOVIR [Concomitant]
     Active Substance: ACYCLOVIR
     Dosage: 200 MG, QD
     Route: 048
     Dates: start: 20160624
  61. FAMOTIDINE. [Concomitant]
     Active Substance: FAMOTIDINE
     Indication: GASTRITIS
     Dosage: 20 MG, QD
     Route: 042
     Dates: start: 20160520, end: 20160520
  62. INSULIN HUMAN [Concomitant]
     Active Substance: INSULIN HUMAN
     Dosage: UNK, QID
     Route: 042
     Dates: start: 20160618
  63. HEPARIN SODIUM. [Concomitant]
     Active Substance: HEPARIN SODIUM
     Dosage: 10000 IU, BID
     Route: 042
     Dates: start: 20160522, end: 20160523
  64. GLUCOSE [Concomitant]
     Active Substance: DEXTROSE
     Dosage: 20 ML, UNK
     Route: 042
     Dates: start: 20160607, end: 20160607
  65. GLUCOSE [Concomitant]
     Active Substance: DEXTROSE
     Dosage: 20 ML, UNK
     Route: 042
     Dates: start: 20160613, end: 20160613
  66. PREDNISOLONE SODIUM SUCCINATE [Concomitant]
     Active Substance: PREDNISOLONE SODIUM SUCCINATE
     Dosage: 40 MG, QD
     Route: 042
     Dates: start: 20160713, end: 20160715
  67. PREDNISOLONE SODIUM SUCCINATE [Concomitant]
     Active Substance: PREDNISOLONE SODIUM SUCCINATE
     Dosage: 10 MG, QD
     Route: 042
     Dates: start: 20160728, end: 20160728
  68. ADENOSINE TRIPHOSPHATE, DISODIUM SALT [Concomitant]
     Indication: SINUS TACHYCARDIA
     Dosage: 10 MG, QD
     Route: 042
     Dates: start: 20160521, end: 20160521
  69. PROPOFOL. [Concomitant]
     Active Substance: PROPOFOL
     Indication: SEDATION
     Dosage: 500 MG, BID
     Route: 042
     Dates: start: 20160523, end: 20160524
  70. ESOMEPRAZOLE MAGNESIUM. [Concomitant]
     Active Substance: ESOMEPRAZOLE MAGNESIUM
     Indication: CHRONIC GASTRITIS
     Dosage: 20 MG, TID
     Route: 048
     Dates: start: 20160615, end: 20160622
  71. MIANSERIN HYDROCHLORIDE [Concomitant]
     Active Substance: MIANSERIN HYDROCHLORIDE
     Indication: DELIRIUM
     Dosage: 30 MG, QD
     Route: 048
     Dates: start: 20160617, end: 20160621
  72. GLYCERIN                           /00200601/ [Concomitant]
     Active Substance: GLYCERIN
     Indication: CONSTIPATION
     Dosage: 60 ML, UNK
     Route: 061
     Dates: start: 20160621, end: 20160621
  73. ACETAMINOPHEN. [Concomitant]
     Active Substance: ACETAMINOPHEN
     Dosage: 500 MG, UNK
     Route: 042
     Dates: start: 20160701
  74. ACICLOVIR [Concomitant]
     Active Substance: ACYCLOVIR
     Indication: OPPORTUNISTIC INFECTION
     Dosage: 250 MG, QD
     Route: 042
     Dates: start: 20160520, end: 20160617
  75. AMBROXOL HYDROCHLORIDE [Concomitant]
     Active Substance: AMBROXOL HYDROCHLORIDE
     Indication: SPINAL COMPRESSION FRACTURE
     Dosage: 60 MG, TID
     Route: 048
     Dates: end: 20160519
  76. GLIMEPIRIDE. [Concomitant]
     Active Substance: GLIMEPIRIDE
     Dosage: 1 MG, QD
     Route: 048
     Dates: start: 20160622, end: 20160622
  77. PROCHLORPERAZINE MESILATE [Concomitant]
     Indication: NAUSEA
     Dosage: 5 MG, TID
     Route: 048
     Dates: end: 20160519
  78. ZOLEDRONIC ACID [Concomitant]
     Active Substance: ZOLEDRONIC ACID
     Indication: BONE LESION
     Dosage: 4 MG, MONTHLY
     Route: 042
     Dates: start: 20160516
  79. DORIPENEM. [Concomitant]
     Active Substance: DORIPENEM
     Indication: INFECTION
     Dosage: 1 G, TID
     Route: 042
     Dates: start: 20160519, end: 20160521
  80. GLUCOSE [Concomitant]
     Active Substance: DEXTROSE
     Dosage: 20 ML, UNK
     Route: 042
     Dates: start: 20160610, end: 20160610
  81. RISPERIDONE. [Concomitant]
     Active Substance: RISPERIDONE
     Dosage: 1 MG, QD
     Route: 048
     Dates: start: 20160611, end: 20160616
  82. GLUCOSE W/SODIUM CHLORIDE [Concomitant]
     Indication: SINUS TACHYCARDIA
     Dosage: 500 MG, BID
     Route: 042
     Dates: start: 20160521, end: 20160521
  83. PROPOFOL. [Concomitant]
     Active Substance: PROPOFOL
     Dosage: UNK
     Route: 042
     Dates: start: 20160622
  84. ISOTONIC SODIUM CHLORIDE SOLUTION [Concomitant]
     Active Substance: SODIUM CHLORIDE
     Indication: DECREASED APPETITE
     Dosage: UNK
     Route: 042
     Dates: start: 20160627
  85. L-CARBOCYSTEINE [Concomitant]
     Active Substance: CARBOCYSTEINE
     Indication: BRONCHITIS CHRONIC
     Dosage: 500 MG, TID
     Route: 048
     Dates: end: 20160519
  86. OXYCODONE HYDROCHLORIDE. [Concomitant]
     Active Substance: OXYCODONE HYDROCHLORIDE
     Dosage: 20 MG, QD
     Route: 042
     Dates: start: 20160520, end: 20160520
  87. WHITE PETROLATUM [Concomitant]
     Active Substance: PETROLATUM
     Indication: ECZEMA ASTEATOTIC
     Dosage: UNK, BID
     Route: 061
  88. AMINO ACIDS NOS W/ELECTROLYTES NOS/GLUCOSE/VI [Concomitant]
     Dosage: 500 ML, BID
     Route: 042
     Dates: start: 20160627
  89. DORIPENEM. [Concomitant]
     Active Substance: DORIPENEM
     Indication: PNEUMONIA
     Dosage: 0.5 G, TID
     Route: 042
     Dates: start: 20160521, end: 20160529
  90. INSULIN HUMAN [Concomitant]
     Active Substance: INSULIN HUMAN
     Dosage: UNK
     Route: 042
     Dates: start: 20160712
  91. HALOPERIDOL. [Concomitant]
     Active Substance: HALOPERIDOL
     Dosage: 2.5 MG, UNK
     Route: 042
     Dates: start: 20160630, end: 20160703
  92. PANTHENOL [Concomitant]
     Active Substance: PANTHENOL
     Indication: ILIUM FRACTURE
     Dosage: 500 MG, UNK
     Route: 042
     Dates: start: 20160527, end: 20160527
  93. PREDNISOLONE SODIUM SUCCINATE [Concomitant]
     Active Substance: PREDNISOLONE SODIUM SUCCINATE
     Dosage: 20 MG, QD
     Route: 042
     Dates: start: 20160607, end: 20160609
  94. RAMELTEON [Concomitant]
     Active Substance: RAMELTEON
     Indication: DELIRIUM
     Dosage: 8 MG, QD
     Route: 048
     Dates: start: 20160604, end: 20160621
  95. RAMELTEON [Concomitant]
     Active Substance: RAMELTEON
     Dosage: 8 MG, QD
     Route: 048
     Dates: start: 20160623
  96. METHYLPREDNISOLONE SODIUM SUCCINATE. [Concomitant]
     Active Substance: METHYLPREDNISOLONE SODIUM SUCCINATE
     Dosage: 62.5 MG, BID
     Route: 042
     Dates: start: 20160523, end: 20160525
  97. METHYLPREDNISOLONE SODIUM SUCCINATE. [Concomitant]
     Active Substance: METHYLPREDNISOLONE SODIUM SUCCINATE
     Dosage: 30 MG, BID
     Route: 042
     Dates: start: 20160526, end: 20160527
  98. MIANSERIN HYDROCHLORIDE [Concomitant]
     Active Substance: MIANSERIN HYDROCHLORIDE
     Dosage: 10 MG, UNK
     Route: 048
     Dates: start: 20160618, end: 20160622
  99. MIANSERIN HYDROCHLORIDE [Concomitant]
     Active Substance: MIANSERIN HYDROCHLORIDE
     Dosage: 30 MG, QD
     Route: 048
     Dates: start: 20160623
  100. APIXABAN [Concomitant]
     Active Substance: APIXABAN
     Indication: SUPRAVENTRICULAR EXTRASYSTOLES
     Dosage: 5 MG, BID
     Route: 048
     Dates: start: 20160620, end: 20160622
  101. ACETAMINOPHEN. [Concomitant]
     Active Substance: ACETAMINOPHEN
     Dosage: 500 MG, UNK
     Route: 042
     Dates: start: 20160622
  102. MEPIVACAINE HYDROCHLORIDE. [Concomitant]
     Active Substance: MEPIVACAINE HYDROCHLORIDE
     Dosage: UNK
     Route: 061
     Dates: start: 20160706, end: 20160706
  103. RISPERIDONE. [Concomitant]
     Active Substance: RISPERIDONE
     Dosage: 0.5 ML, UNK
     Route: 048
     Dates: start: 20160606, end: 20160609
  104. ACETAMINOPHEN. [Concomitant]
     Active Substance: ACETAMINOPHEN
     Indication: PNEUMONIA
     Dosage: 800 MG, UNK
     Route: 045
     Dates: start: 20160705, end: 20160705
  105. REBAMIPIDE [Concomitant]
     Active Substance: REBAMIPIDE
     Indication: CHRONIC GASTRITIS
     Dosage: 100 MG, TID
     Route: 048
     Dates: end: 20160519
  106. ACICLOVIR [Concomitant]
     Active Substance: ACYCLOVIR
     Indication: OPPORTUNISTIC INFECTION
     Dosage: 200 MG, QD
     Route: 048
     Dates: start: 20160517, end: 20160519
  107. SULFAMETHOXAZOLE [Concomitant]
     Active Substance: SULFAMETHOXAZOLE
     Dosage: 40 MG, TID
     Route: 048
     Dates: start: 20160606, end: 20160620
  108. TRIMETHOPRIM. [Concomitant]
     Active Substance: TRIMETHOPRIM
     Dosage: UNK, BID
     Route: 048
     Dates: start: 20160606, end: 20160620
  109. HEPARINOID [Concomitant]
     Active Substance: CHONDROITIN SULFATE (BOVINE)
     Indication: ECZEMA ASTEATOTIC
     Dosage: UNK
     Route: 065
     Dates: start: 20160514
  110. OMEPRAZOLE. [Concomitant]
     Active Substance: OMEPRAZOLE
     Indication: MUCOSAL ULCERATION
     Dosage: 20 MG, TID
     Route: 042
     Dates: start: 20160623, end: 20160623
  111. HALOPERIDOL. [Concomitant]
     Active Substance: HALOPERIDOL
     Dosage: 2.5 MG, QD
     Route: 042
     Dates: start: 20160525, end: 20160527
  112. HALOPERIDOL. [Concomitant]
     Active Substance: HALOPERIDOL
     Dosage: 2.5 MG, UNK
     Route: 042
     Dates: start: 20160527, end: 20160604
  113. HYDROXYZINE HYDROCHLORIDE. [Concomitant]
     Active Substance: HYDROXYZINE HYDROCHLORIDE
     Indication: DELIRIUM
     Dosage: 25 MG, UNK
     Route: 042
     Dates: start: 20160528, end: 20160530
  114. PREDNISOLONE SODIUM SUCCINATE [Concomitant]
     Active Substance: PREDNISOLONE SODIUM SUCCINATE
     Indication: ACUTE RESPIRATORY FAILURE
     Dosage: 50 MG, MONTHLY
     Route: 042
     Dates: start: 20160529, end: 20160531
  115. DOPAMINE HYDROCHLORIDE. [Concomitant]
     Active Substance: DOPAMINE HYDROCHLORIDE
     Indication: SINUS TACHYCARDIA
     Dosage: 600 MG, QD
     Route: 042
     Dates: start: 20160522, end: 20160523
  116. METHYLPREDNISOLONE SODIUM SUCCINATE. [Concomitant]
     Active Substance: METHYLPREDNISOLONE SODIUM SUCCINATE
     Dosage: 125 MG, QD
     Route: 042
     Dates: start: 20160622, end: 20160627
  117. MIANSERIN HYDROCHLORIDE [Concomitant]
     Active Substance: MIANSERIN HYDROCHLORIDE
     Dosage: 30 MG, QD
     Route: 048
     Dates: start: 20160630
  118. BISOPROLOL FUMARATE. [Concomitant]
     Active Substance: BISOPROLOL FUMARATE
     Indication: SUPRAVENTRICULAR EXTRASYSTOLES
     Dosage: 2.5 MG, QD
     Route: 048
     Dates: start: 20160620, end: 20160622
  119. APIXABAN [Concomitant]
     Active Substance: APIXABAN
     Dosage: 2.5 MG, QD
     Route: 048
     Dates: start: 20160627
  120. DIAZEPAM. [Concomitant]
     Active Substance: DIAZEPAM
     Indication: SEDATION
     Dosage: 5 MG, UNK
     Route: 042
     Dates: start: 20160622, end: 20160622
  121. NORADRENALIN                       /00127501/ [Concomitant]
     Active Substance: NOREPINEPHRINE\NOREPINEPHRINE BITARTRATE
     Indication: HYPOTENSION
     Dosage: UNK
     Route: 042
     Dates: start: 20160627, end: 20160627
  122. BIFIDOBACTERIUM NOS [Concomitant]
     Indication: CONSTIPATION
     Dosage: 1 G, TID
     Route: 045
     Dates: start: 20160628, end: 20160701
  123. ACETAMINOPHEN. [Concomitant]
     Active Substance: ACETAMINOPHEN
     Dosage: 400 MG, UNK
     Route: 045
     Dates: start: 20160705, end: 20160705
  124. ACICLOVIR [Concomitant]
     Active Substance: ACYCLOVIR
     Dosage: 250 MG, QD
     Route: 042
     Dates: start: 20160623, end: 20160623
  125. OXYCODONE HYDROCHLORIDE. [Concomitant]
     Active Substance: OXYCODONE HYDROCHLORIDE
     Indication: SPINAL COMPRESSION FRACTURE
     Dosage: 20 MG, QD
     Route: 042
     Dates: start: 20160520, end: 20160520
  126. MECOBALAMIN [Concomitant]
     Active Substance: METHYLCOBALAMIN
     Indication: SCIATICA
     Dosage: 500 ?G, TID
     Route: 048
     Dates: end: 20160519
  127. GLIMEPIRIDE. [Concomitant]
     Active Substance: GLIMEPIRIDE
     Indication: TYPE 2 DIABETES MELLITUS
     Dosage: 1 MG, QD
     Route: 048
     Dates: end: 20160519
  128. SODIUM GUALENATE HYDRATE [Concomitant]
     Active Substance: SODIUM GUALENATE MONOHYDRATE
     Indication: PERIODONTAL DISEASE
     Dosage: UNK, QID
     Route: 061
  129. MICAFUNGIN SODIUM [Concomitant]
     Active Substance: MICAFUNGIN SODIUM
     Indication: INFECTION
     Dosage: 50 MG, QD
     Route: 042
     Dates: start: 20160520
  130. INSULIN HUMAN [Concomitant]
     Active Substance: INSULIN HUMAN
     Indication: TYPE 2 DIABETES MELLITUS
     Dosage: 0.5 ML, QD
     Route: 042
     Dates: start: 20160520, end: 20160528
  131. HEPARIN SODIUM. [Concomitant]
     Active Substance: HEPARIN SODIUM
     Indication: THROMBOSIS
     Dosage: 13000 IU, QD
     Route: 042
     Dates: start: 20160521, end: 20160521
  132. FLURBIPROFEN AXETIL [Concomitant]
     Active Substance: FLURBIPROFEN AXETIL
     Indication: INTERVERTEBRAL DISC COMPRESSION
     Dosage: 25 MG, BID
     Route: 042
     Dates: start: 20160524, end: 20160525
  133. GLUCOSE [Concomitant]
     Active Substance: DEXTROSE
     Indication: HYPOGLYCAEMIA
     Dosage: 20 MG, UNK
     Route: 042
     Dates: start: 20160527, end: 20160528
  134. HALOPERIDOL. [Concomitant]
     Active Substance: HALOPERIDOL
     Indication: DELIRIUM
     Dosage: 5 MG, QD
     Route: 042
     Dates: start: 20160524, end: 20160524

REACTIONS (19)
  - Delirium [Unknown]
  - Gangrene [Unknown]
  - Decreased appetite [Unknown]
  - Bradycardia [Unknown]
  - Pneumonia [Recovered/Resolved]
  - Arrhythmia [Unknown]
  - Benign prostatic hyperplasia [Unknown]
  - Ilium fracture [Unknown]
  - Decubitus ulcer [Unknown]
  - Tumour lysis syndrome [Not Recovered/Not Resolved]
  - Cardiac arrest [Recovered/Resolved]
  - Haematochezia [Unknown]
  - Hypoglycaemia [Unknown]
  - Spinal compression fracture [Unknown]
  - Sinus tachycardia [Unknown]
  - Pneumonia aspiration [Unknown]
  - Hypokalaemia [Unknown]
  - Pleural effusion [Unknown]
  - Acute respiratory failure [Fatal]

NARRATIVE: CASE EVENT DATE: 20160519
